FAERS Safety Report 15077552 (Version 1)
Quarter: 2018Q2

REPORT INFORMATION
  Report Type: Report from Study
  Country: PL (occurrence: PL)
  Receive Date: 20180627
  Receipt Date: 20180627
  Transmission Date: 20180711
  Serious: Yes (Other)
  Sender: FDA-Public Use
  Company Number: PL-CHIESI USA INC.-PL-2018CHI000162

PATIENT
  Age: 0 Day
  Sex: Male
  Weight: 1.12 kg

DRUGS (5)
  1. GENTAMYCIN                         /00047101/ [Concomitant]
     Active Substance: GENTAMICIN
     Indication: PRODUCT USED FOR UNKNOWN INDICATION
     Dosage: 5 MG, QD
     Dates: start: 20180523, end: 20180527
  2. CUROSURF [Suspect]
     Active Substance: PORACTANT ALFA
     Indication: NEONATAL RESPIRATORY DISTRESS SYNDROME
     Dosage: 3 ML, SINGLE
     Route: 007
     Dates: start: 20180523, end: 20180523
  3. KETAMINE [Concomitant]
     Active Substance: KETAMINE
     Indication: PREMEDICATION
     Dosage: UNK
     Dates: start: 20180523, end: 20180523
  4. PEYONA [Concomitant]
     Indication: NEONATAL RESPIRATORY DISTRESS SYNDROME
     Dosage: 22 MG, QD
     Dates: start: 20180523, end: 20180523
  5. AMPICILLIN [Concomitant]
     Active Substance: AMPICILLIN
     Indication: PRODUCT USED FOR UNKNOWN INDICATION
     Dosage: 55 MG, QD
     Dates: start: 20180523, end: 20180525

REACTIONS (2)
  - Neonatal hypoxia [Recovered/Resolved]
  - Drug administration error [Unknown]

NARRATIVE: CASE EVENT DATE: 20180523
